FAERS Safety Report 25960367 (Version 3)
Quarter: 2025Q4

REPORT INFORMATION
  Report Type: Report from Study
  Country: JP (occurrence: JP)
  Receive Date: 20251026
  Receipt Date: 20251217
  Transmission Date: 20260117
  Serious: Yes (Hospitalization)
  Sender: NOVARTIS
  Company Number: JP-002147023-NVSJ2025JP010338

PATIENT
  Age: 81 Year
  Sex: Male
  Weight: 64 kg

DRUGS (3)
  1. TABRECTA [Suspect]
     Active Substance: CAPMATINIB
     Indication: Glioblastoma
     Dosage: 800 MG
     Route: 048
     Dates: start: 20250401, end: 20251018
  2. TABRECTA [Suspect]
     Active Substance: CAPMATINIB
     Dosage: UNK, DOSE REDUCED
     Route: 048
  3. TABRECTA [Suspect]
     Active Substance: CAPMATINIB
     Dosage: 800 MG
     Route: 048
     Dates: start: 20251108, end: 20251110

REACTIONS (4)
  - Prostatitis [Recovering/Resolving]
  - Urinary tract infection [Recovering/Resolving]
  - Pyrexia [Recovered/Resolved]
  - Pyuria [Unknown]

NARRATIVE: CASE EVENT DATE: 20251018
